FAERS Safety Report 5225423-2 (Version None)
Quarter: 2007Q1

REPORT INFORMATION
  Report Type: 
  Country: None (occurrence: None)
  Receive Date: 20061201
  Receipt Date: 20060821
  Transmission Date: 20070707
  Serious: No
  Sender: FDA-Public Use
  Company Number: US200608004584

PATIENT
  Age: 41 Year
  Sex: Female

DRUGS (1)
  1. CYMBALTA [Suspect]
     Indication: ANXIETY
     Dosage: SEE IMAGE
     Dates: start: 20051001

REACTIONS (4)
  - DEPRESSED MOOD [None]
  - DRUG INEFFECTIVE [None]
  - WEIGHT DECREASED [None]
  - WEIGHT INCREASED [None]
